FAERS Safety Report 16012873 (Version 3)
Quarter: 2019Q2

REPORT INFORMATION
  Report Type: Spontaneous
  Country: ES (occurrence: ES)
  Receive Date: 20190227
  Receipt Date: 20190417
  Transmission Date: 20190711
  Serious: Yes (Hospitalization, Other)
  Sender: FDA-Public Use
  Company Number: ES-VERTEX PHARMACEUTICALS-2019-001614

PATIENT
  Age: 37 Year
  Sex: Female

DRUGS (7)
  1. ORKAMBI [Suspect]
     Active Substance: IVACAFTOR\LUMACAFTOR
     Dosage: 2 TABLET IN MORNING AND 1 TABLET IN EVENING
     Route: 048
     Dates: start: 2016
  2. GARLIC                             /01570501/ [Concomitant]
     Active Substance: GARLIC
  3. IBUPROFEN. [Concomitant]
     Active Substance: IBUPROFEN
  4. ORKAMBI [Suspect]
     Active Substance: IVACAFTOR\LUMACAFTOR
     Indication: CYSTIC FIBROSIS
     Dosage: 2 DOSAGE FORM, BID
     Route: 048
     Dates: start: 20160331, end: 2016
  5. KREON [Concomitant]
     Active Substance: PANCRELIPASE
  6. ORKAMBI [Suspect]
     Active Substance: IVACAFTOR\LUMACAFTOR
     Dosage: 1 TABLET IN MORNING AND 2 TABLET IN EVENING
     Route: 048
  7. SEPTRIN [Concomitant]
     Active Substance: SULFAMETHOXAZOLE\TRIMETHOPRIM

REACTIONS (9)
  - Abdominal distension [Recovered/Resolved]
  - Infective pulmonary exacerbation of cystic fibrosis [Unknown]
  - Faeces soft [Recovered/Resolved]
  - Faecal volume increased [Recovered/Resolved]
  - Rales [Recovered/Resolved]
  - Cystic fibrosis lung [Unknown]
  - Lung infection pseudomonal [Recovered/Resolved]
  - Weight decreased [Recovered/Resolved]
  - Productive cough [Recovering/Resolving]

NARRATIVE: CASE EVENT DATE: 201604
